FAERS Safety Report 5574723-5 (Version None)
Quarter: 2007Q4

REPORT INFORMATION
  Report Type: 
  Country: None (occurrence: None)
  Receive Date: 20071130
  Receipt Date: 20070808
  Transmission Date: 20080405
  Serious: No
  Sender: FDA-Public Use
  Company Number: US200708003655

PATIENT
  Sex: Female

DRUGS (5)
  1. BYETTA [Suspect]
     Dosage: SUBCUTANEOUS
     Route: 058
     Dates: end: 20070701
  2. EXENATIDE UNK STRENGTH PEN, DISPOSABLE DEVICE (EXENATIDE PEN (UNKNOWN [Concomitant]
  3. METFORMIN HCL [Concomitant]
  4. CELEBREX [Concomitant]
  5. THYROID TAB [Concomitant]

REACTIONS (3)
  - CONSTIPATION [None]
  - FAECES HARD [None]
  - MALAISE [None]
